FAERS Safety Report 7222988-6 (Version None)
Quarter: 2011Q1

REPORT INFORMATION
  Report Type: 
  Country: None (occurrence: None)
  Receive Date: 20110112
  Receipt Date: 20101122
  Transmission Date: 20110831
  Serious: Yes (Other)
  Sender: FDA-Public Use
  Company Number: PHHY2010US77775

PATIENT
  Sex: Female

DRUGS (16)
  1. EXJADE [Suspect]
     Dosage: 1000 MG, QD
     Route: 048
     Dates: start: 20101115
  2. FISH OIL [Concomitant]
     Dosage: UNK
  3. VITAMIN D [Concomitant]
     Dosage: UNK
  4. TYLENOL WITH ULTRAM [Concomitant]
     Dosage: UNK
  5. LYRICA [Concomitant]
     Dosage: 150 MG, BID
  6. PRILOSEC [Concomitant]
     Dosage: 20 MG, UNK
  7. VIDAZA [Concomitant]
     Indication: MYELODYSPLASTIC SYNDROME
     Dosage: UNK, EVERY6 WEEK FOR 7 DAYS
     Route: 042
  8. METOPROLOL [Concomitant]
     Dosage: 75 MG, UNK
  9. CALCIUM [Concomitant]
     Dosage: UNK
  10. ESTROVEN [Concomitant]
     Dosage: UNK
  11. PREDNISONE [Concomitant]
     Dosage: 10 MG, UNK
  12. TRAMADOL HCL [Concomitant]
     Dosage: 25 MG, BID
  13. DIGOXIN [Concomitant]
     Dosage: UNK
  14. SIMVASTATIN [Concomitant]
     Dosage: UNK
  15. EXJADE [Suspect]
     Indication: MYELODYSPLASTIC SYNDROME
     Dosage: 1500 MG, QD
     Route: 048
     Dates: start: 20101113
  16. MULTI-VITAMINS [Concomitant]
     Dosage: UNK

REACTIONS (6)
  - URINARY TRACT DISORDER [None]
  - RETINAL DISORDER [None]
  - DIARRHOEA [None]
  - HAEMATURIA [None]
  - VITREOUS FLOATERS [None]
  - VISUAL IMPAIRMENT [None]
